FAERS Safety Report 16479367 (Version 1)
Quarter: 2019Q2

REPORT INFORMATION
  Report Type: Spontaneous
  Country: RU (occurrence: RU)
  Receive Date: 20190626
  Receipt Date: 20190626
  Transmission Date: 20190711
  Serious: Yes (Death, Hospitalization, Other)
  Sender: FDA-Public Use
  Company Number: RU-ALEXION PHARMACEUTICALS INC-A201909639

PATIENT
  Age: 3 Month
  Sex: Female
  Weight: 3.6 kg

DRUGS (1)
  1. KANUMA [Suspect]
     Active Substance: SEBELIPASE ALFA
     Indication: LYSOSOMAL ACID LIPASE DEFICIENCY
     Dosage: 3MG/KG 3 DOSES
     Route: 065

REACTIONS (2)
  - Renal failure [Fatal]
  - Hepatic failure [Fatal]
